FAERS Safety Report 8812253 (Version 2)
Quarter: 2012Q4

REPORT INFORMATION
  Report Type: 
  Country: US (occurrence: US)
  Receive Date: 20120927
  Receipt Date: 20121126
  Transmission Date: 20130627
  Serious: Yes (Hospitalization)
  Sender: FDA-Public Use
  Company Number: US-MPIJNJ-2012-06555

PATIENT
  Age: 15 Year
  Sex: Female
  Weight: 94.4 kg

DRUGS (5)
  1. VELCADE [Suspect]
     Indication: ACUTE MYELOID LEUKAEMIA
     Dosage: 1.3 mg/m2, Cyclic
     Route: 040
     Dates: start: 20120905, end: 20120909
  2. DAUNORUBICIN HYDROCHLORIDE [Suspect]
     Indication: ACUTE MYELOID LEUKAEMIA
     Dosage: 50 mg/m2, Cyclic
     Route: 042
     Dates: start: 20120905, end: 20120909
  3. CYTARABINE [Suspect]
     Indication: ACUTE MYELOID LEUKAEMIA
     Dosage: UNK, Cyclic
     Route: 037
     Dates: start: 20120905, end: 20120913
  4. CYTARABINE [Suspect]
     Dosage: 100 mg/m2, Cyclic
     Route: 042
     Dates: start: 20120905, end: 20120913
  5. ETOPOSIDE [Suspect]
     Indication: ACUTE MYELOID LEUKAEMIA
     Dosage: 100 mg/m2, Cyclic
     Route: 042
     Dates: start: 20120905, end: 20120910

REACTIONS (1)
  - Caecitis [Not Recovered/Not Resolved]
